FAERS Safety Report 11772084 (Version 1)
Quarter: 2015Q4

REPORT INFORMATION
  Report Type: Spontaneous
  Country: ID (occurrence: ID)
  Receive Date: 20151124
  Receipt Date: 20151124
  Transmission Date: 20160304
  Serious: Yes (Death)
  Sender: FDA-Public Use
  Company Number: ID-MYLANLABS-2015M1040857

PATIENT

DRUGS (1)
  1. PAMIDRONATE DISODIUM. [Suspect]
     Active Substance: PAMIDRONATE DISODIUM
     Indication: OSTEOGENESIS IMPERFECTA
     Route: 041

REACTIONS (1)
  - Hyperthermia [Fatal]
